FAERS Safety Report 7888013-9 (Version None)
Quarter: 2011Q4

REPORT INFORMATION
  Report Type: 
  Country: None (occurrence: None)
  Receive Date: 20111103
  Receipt Date: 20111025
  Transmission Date: 20120403
  Serious: Yes (Other)
  Sender: FDA-Public Use
  Company Number: US-JNJFOC-20111011265

PATIENT
  Sex: Female
  Weight: 64.41 kg

DRUGS (3)
  1. IMURAN [Concomitant]
     Indication: CROHN'S DISEASE
     Route: 048
     Dates: start: 20010101
  2. REMICADE [Suspect]
     Indication: CROHN'S DISEASE
     Route: 042
     Dates: start: 20080101
  3. PENTASA [Concomitant]
     Indication: INFLAMMATION
     Route: 048
     Dates: start: 19970101

REACTIONS (6)
  - BODY HEIGHT DECREASED [None]
  - PAIN IN EXTREMITY [None]
  - HYPOAESTHESIA ORAL [None]
  - MENOPAUSE [None]
  - HYPOAESTHESIA [None]
  - ARTHRALGIA [None]
